FAERS Safety Report 15148156 (Version 1)
Quarter: 2018Q3

REPORT INFORMATION
  Report Type: Spontaneous
  Country: US (occurrence: US)
  Receive Date: 20180716
  Receipt Date: 20180716
  Transmission Date: 20181010
  Serious: No
  Sender: FDA-Public Use
  Company Number: US-009507513-1611USA013757

PATIENT
  Age: 27 Year
  Sex: Female

DRUGS (3)
  1. ISENTRESS [Suspect]
     Active Substance: RALTEGRAVIR POTASSIUM
     Dosage: TOTAL DAILY DOSE 400 DF
     Route: 048
  2. TENOFOVIR DISOPROXIL FUMARATE. [Suspect]
     Active Substance: TENOFOVIR DISOPROXIL FUMARATE
     Dosage: TOTAL DAILY DOSE 1 DF
     Route: 048
  3. EMTRICITABINE [Suspect]
     Active Substance: EMTRICITABINE
     Dosage: UNK

REACTIONS (1)
  - Maternal exposure during pregnancy [Recovered/Resolved]
